FAERS Safety Report 23429640 (Version 3)
Quarter: 2024Q1

REPORT INFORMATION
  Report Type: Spontaneous
  Country: IL (occurrence: IL)
  Receive Date: 20240122
  Receipt Date: 20240318
  Transmission Date: 20240410
  Serious: Yes (Other)
  Sender: FDA-Public Use
  Company Number: IL-PFIZER INC-202400016656

PATIENT
  Age: 54 Year
  Sex: Male

DRUGS (5)
  1. CIBINQO [Suspect]
     Active Substance: ABROCITINIB
     Indication: Dermatitis atopic
     Dosage: 200 MG, DAILY
     Dates: start: 20231012, end: 20231203
  2. CIBINQO [Suspect]
     Active Substance: ABROCITINIB
     Dosage: 100 MG EVERY SECOND DAY
     Dates: start: 20231229
  3. CIBINQO [Suspect]
     Active Substance: ABROCITINIB
     Dosage: 100 MG, DAILY
     Dates: start: 20240117
  4. CIBINQO [Suspect]
     Active Substance: ABROCITINIB
     Dosage: 100 MG EVERY SECOND DAY
     Dates: start: 202402
  5. PREDNISONE [Concomitant]
     Active Substance: PREDNISONE
     Dosage: 5-20 MG
     Route: 048

REACTIONS (2)
  - Hepatic enzyme increased [Recovered/Resolved]
  - Thrombocytopenia [Unknown]

NARRATIVE: CASE EVENT DATE: 20231105
